FAERS Safety Report 4309995-8 (Version None)
Quarter: 2004Q1

REPORT INFORMATION
  Report Type: 
  Country: None (occurrence: None)
  Receive Date: 20040301
  Receipt Date: 20040219
  Transmission Date: 20041129
  Serious: Yes (Hospitalization)
  Sender: FDA-Public Use
  Company Number: FLUV00304000518

PATIENT
  Age: 30 Year
  Sex: Male

DRUGS (11)
  1. FLUVOXAMINE MALEATE [Suspect]
     Indication: ILL-DEFINED DISORDER
     Dosage: 75 MG DAILY PO
     Route: 048
     Dates: end: 20031215
  2. LEXOTAN (BROMAZEPAM) [Concomitant]
  3. HIRNAMIN (LEVOMEPROMAZINE) [Concomitant]
  4. AMOBAN (ZOPICLONE) [Concomitant]
  5. SILECE (FLUNITRAZEPAM) [Concomitant]
  6. AKINETON [Concomitant]
  7. PYRETHIA (PROMETHAZAINE HYDROCHLORIDE) [Concomitant]
  8. RITALIN [Concomitant]
  9. ISOMYTAL (AMOBARBITAL) [Concomitant]
  10. BROVARIN (BROMISOVAL) [Concomitant]
  11. AMITRIPTYLINE HYDROCHLORIDE [Concomitant]

REACTIONS (4)
  - AUTONOMIC NERVOUS SYSTEM IMBALANCE [None]
  - DELIRIUM [None]
  - DRUG ERUPTION [None]
  - DRUG WITHDRAWAL SYNDROME [None]
